FAERS Safety Report 10492633 (Version 1)
Quarter: 2014Q4

REPORT INFORMATION
  Report Type: Spontaneous
  Country: US (occurrence: US)
  Receive Date: 20141002
  Receipt Date: 20141002
  Transmission Date: 20150528
  Serious: No
  Sender: FDA-Public Use
  Company Number: US-GLAXOSMITHKLINE-A1073453A

PATIENT
  Age: 76 Year
  Sex: Male

DRUGS (10)
  1. ASPIRIN. [Concomitant]
     Active Substance: ASPIRIN
  2. KLOR-CON [Concomitant]
     Active Substance: POTASSIUM CHLORIDE
  3. DIGOXIN. [Concomitant]
     Active Substance: DIGOXIN
  4. FISH OIL [Concomitant]
     Active Substance: FISH OIL
  5. COUMADIN [Concomitant]
     Active Substance: WARFARIN SODIUM
  6. LASIX [Concomitant]
     Active Substance: FUROSEMIDE
  7. ZOCOR [Concomitant]
     Active Substance: SIMVASTATIN
  8. ADVAIR HFA [Suspect]
     Active Substance: FLUTICASONE PROPIONATE\SALMETEROL XINAFOATE
     Indication: DYSPNOEA
     Dosage: 1PUFF TWICE PER DAY
     Route: 055
  9. COREG [Concomitant]
     Active Substance: CARVEDILOL
  10. VITAMINS [Concomitant]
     Active Substance: VITAMINS

REACTIONS (2)
  - Dyspnoea [Not Recovered/Not Resolved]
  - Product quality issue [Unknown]

NARRATIVE: CASE EVENT DATE: 20140513
